FAERS Safety Report 7445366-3 (Version None)
Quarter: 2011Q2

REPORT INFORMATION
  Report Type: 
  Country: None (occurrence: None)
  Receive Date: 20110429
  Receipt Date: 20110204
  Transmission Date: 20111010
  Serious: No
  Sender: FDA-Public Use
  Company Number: A0912750A

PATIENT
  Age: 54 Year
  Sex: Male

DRUGS (1)
  1. ZOFRAN [Suspect]
     Dosage: 4MG UNKNOWN
     Route: 065
     Dates: start: 20100818

REACTIONS (2)
  - NAUSEA [None]
  - PAIN [None]
